FAERS Safety Report 14593170 (Version 1)
Quarter: 2018Q1

REPORT INFORMATION
  Report Type: Spontaneous
  Country: IT (occurrence: IT)
  Receive Date: 20180302
  Receipt Date: 20180302
  Transmission Date: 20180509
  Serious: Yes (Death, Hospitalization)
  Sender: FDA-Public Use
  Company Number: IT-SA-2018SA045240

PATIENT
  Age: 74 Year
  Sex: Male

DRUGS (5)
  1. METRONIDAZOLE. [Concomitant]
     Active Substance: METRONIDAZOLE
     Route: 065
  2. RIFAMPICIN [Suspect]
     Active Substance: RIFAMPIN
     Indication: ENDOCARDITIS BACTERIAL
     Dosage: INFUSION
     Route: 065
  3. SULBACTAM/AMPICILLIN [Suspect]
     Active Substance: AMPICILLIN SODIUM\SULBACTAM SODIUM
     Indication: ENDOCARDITIS BACTERIAL
     Route: 042
  4. CEFTRIAXONE. [Concomitant]
     Active Substance: CEFTRIAXONE
     Route: 042
  5. GENTAMICIN. [Suspect]
     Active Substance: GENTAMICIN
     Indication: ENDOCARDITIS BACTERIAL
     Route: 042

REACTIONS (21)
  - Condition aggravated [Fatal]
  - Drug ineffective [Unknown]
  - Compartment syndrome [Unknown]
  - Multiple organ dysfunction syndrome [Fatal]
  - Infective aneurysm [None]
  - Pneumonia bacterial [None]
  - Hypotension [Unknown]
  - Oliguria [Unknown]
  - Haemorrhagic stroke [Unknown]
  - Anaemia [Unknown]
  - Off label use [Unknown]
  - Embolism [None]
  - Aneurysm ruptured [None]
  - Dyspnoea [Unknown]
  - Haemorrhagic anaemia [None]
  - Endocarditis bacterial [Fatal]
  - Pneumonia [Unknown]
  - Peripheral ischaemia [Unknown]
  - Stupor [Unknown]
  - Bradycardia [Unknown]
  - Bacterial sepsis [Fatal]
